FAERS Safety Report 6843805-X (Version None)
Quarter: 2010Q3

REPORT INFORMATION
  Report Type: 
  Country: None (occurrence: None)
  Receive Date: 20100715
  Receipt Date: 20100701
  Transmission Date: 20110219
  Serious: Yes (Other)
  Sender: FDA-Public Use
  Company Number: PHEH2009US13238

PATIENT
  Sex: Male

DRUGS (1)
  1. AFINITOR [Suspect]
     Indication: RENAL CELL CARCINOMA
     Dosage: UNK

REACTIONS (4)
  - BLOOD CHOLESTEROL INCREASED [None]
  - DEEP VEIN THROMBOSIS [None]
  - JOINT SWELLING [None]
  - OEDEMA PERIPHERAL [None]
